FAERS Safety Report 15586223 (Version 1)
Quarter: 2018Q4

REPORT INFORMATION
  Report Type: Spontaneous
  Country: US (occurrence: US)
  Receive Date: 20181105
  Receipt Date: 20181105
  Transmission Date: 20190205
  Serious: No
  Sender: FDA-Public Use
  Company Number: US-ALLERGAN-1817164US

PATIENT
  Age: 22 Year
  Sex: Female

DRUGS (2)
  1. LO LOESTRIN FE [Suspect]
     Active Substance: ETHINYL ESTRADIOL\NORETHINDRONE ACETATE
     Indication: CONTRACEPTION
     Dosage: UNK
     Route: 048
     Dates: start: 20180117, end: 20180215
  2. NOR-QD [Concomitant]
     Active Substance: NORETHINDRONE
     Indication: CONTRACEPTION
     Dosage: UNK
     Route: 048

REACTIONS (4)
  - Muscle spasms [Unknown]
  - Vaginal haemorrhage [Unknown]
  - Headache [Unknown]
  - Hypertension [Unknown]
